FAERS Safety Report 23393307 (Version 2)
Quarter: 2024Q1

REPORT INFORMATION
  Report Type: Spontaneous
  Country: IN (occurrence: IN)
  Receive Date: 20240111
  Receipt Date: 20240116
  Transmission Date: 20240409
  Serious: Yes (Other)
  Sender: FDA-Public Use
  Company Number: IN-002147023-NVSC2024IN004730

PATIENT
  Sex: Female

DRUGS (1)
  1. RIBOCICLIB [Suspect]
     Active Substance: RIBOCICLIB
     Indication: Product used for unknown indication
     Dosage: 600 MG, QD
     Route: 048
     Dates: start: 20230916

REACTIONS (5)
  - Subclavian vein embolism [Recovering/Resolving]
  - Breast cancer [Recovering/Resolving]
  - Skin ulcer [Recovering/Resolving]
  - Pain [Recovering/Resolving]
  - Pleural thickening [Recovering/Resolving]
